FAERS Safety Report 16070176 (Version 1)
Quarter: 2019Q1

REPORT INFORMATION
  Report Type: Spontaneous
  Country: ES (occurrence: ES)
  Receive Date: 20190314
  Receipt Date: 20190314
  Transmission Date: 20190418
  Serious: Yes (Hospitalization, Other)
  Sender: FDA-Public Use
  Company Number: ES-AUROBINDO-AUR-APL-2019-012727

PATIENT

DRUGS (6)
  1. LEVETIRACETAM. [Suspect]
     Active Substance: LEVETIRACETAM
     Indication: FOCAL DYSCOGNITIVE SEIZURES
     Dosage: 1 GRAM
     Route: 048
     Dates: start: 20181024, end: 20181125
  2. ACFOL [Concomitant]
     Active Substance: FOLIC ACID
     Indication: ANAEMIA
     Dosage: 5 MILLIGRAM, 28 TABLETS
     Route: 048
     Dates: start: 20181105
  3. HIDROXIL B12 B6 B1 [Concomitant]
     Active Substance: HYDROXOCOBALAMIN\PYRIDOXINE HYDROCHLORIDE\THIAMINE HYDROCHLORIDE
     Indication: VITAMIN B COMPLEX DEFICIENCY
     Dosage: UNK, 30 TABLETS
     Route: 048
     Dates: start: 20181024
  4. MAGNOGENE [Concomitant]
     Indication: HYPOMAGNESAEMIA
     Dosage: UNK, 45 TABLETS
     Route: 048
     Dates: start: 20181029
  5. QUETIAPINE. [Concomitant]
     Active Substance: QUETIAPINE
     Indication: PERSONALITY DISORDER
     Dosage: 100 MILLIGRAM
     Route: 048
     Dates: start: 20180522, end: 20181112
  6. MIRTAZAPINE. [Concomitant]
     Active Substance: MIRTAZAPINE
     Indication: DEPRESSION
     Dosage: 30 MILLIGRAM
     Route: 048
     Dates: start: 20180522

REACTIONS (1)
  - Acute psychosis [Recovered/Resolved]

NARRATIVE: CASE EVENT DATE: 20181107
